FAERS Safety Report 25722730 (Version 2)
Quarter: 2025Q3

REPORT INFORMATION
  Report Type: Spontaneous
  Country: JP (occurrence: JP)
  Receive Date: 20250825
  Receipt Date: 20250826
  Transmission Date: 20251021
  Serious: Yes (Other)
  Sender: ALEXION PHARMACEUTICALS
  Company Number: JP-ASTRAZENECA-202508JPN005162JP

PATIENT
  Age: 9 Decade
  Sex: Male

DRUGS (2)
  1. ULTOMIRIS [Suspect]
     Active Substance: RAVULIZUMAB-CWVZ
     Indication: Paroxysmal nocturnal haemoglobinuria
     Route: 065
     Dates: start: 20190927, end: 20190927
  2. ULTOMIRIS [Suspect]
     Active Substance: RAVULIZUMAB-CWVZ
     Dosage: 3000 MILLIGRAM, Q8W
     Route: 065
     Dates: start: 20191011, end: 20250701

REACTIONS (4)
  - Breakthrough haemolysis [Unknown]
  - Haemoglobin decreased [Unknown]
  - Reticulocyte count increased [Unknown]
  - Blood bilirubin unconjugated increased [Unknown]
